FAERS Safety Report 8296506-8 (Version None)
Quarter: 2012Q2

REPORT INFORMATION
  Report Type: 
  Country: None (occurrence: None)
  Receive Date: 20120418
  Receipt Date: 20120416
  Transmission Date: 20120825
  Serious: No
  Sender: FDA-Public Use
  Company Number: US-PFIZER INC-2012095151

PATIENT
  Sex: Female
  Weight: 65.76 kg

DRUGS (8)
  1. LISINOPRIL [Concomitant]
     Indication: HYPERTENSION
     Dosage: UNK, 2X/DAY
  2. SIMVASTATIN [Concomitant]
     Indication: BLOOD CHOLESTEROL ABNORMAL
     Dosage: UNK, DAILY
  3. VITAMIN D [Concomitant]
     Indication: SUPPLEMENTATION THERAPY
     Dosage: UNK
  4. LYRICA [Suspect]
     Indication: NERVE INJURY
     Dosage: 150 MG, DAILY
     Dates: start: 20110101
  5. OMEPRAZOLE [Concomitant]
     Indication: DYSPEPSIA
     Dosage: UNK
  6. MINI-PILL [Concomitant]
     Indication: CONTRACEPTION
     Dosage: UNK
  7. HYDROCHLOROTHIAZIDE [Concomitant]
     Indication: RENAL DISORDER
     Dosage: UNK, DAILY
  8. PROCHLORPERAZINE [Concomitant]
     Indication: NAUSEA
     Dosage: UNK, AS NEDDED

REACTIONS (3)
  - FEELING ABNORMAL [None]
  - DIZZINESS [None]
  - SOMNOLENCE [None]
